FAERS Safety Report 6328751-2 (Version None)
Quarter: 2009Q3

REPORT INFORMATION
  Report Type: 
  Country: None (occurrence: None)
  Receive Date: 20090825
  Receipt Date: 20090825
  Transmission Date: 20100115
  Serious: No
  Sender: FDA-Public Use
  Company Number: None

PATIENT
  Sex: Female
  Weight: 67.6 kg

DRUGS (1)
  1. MEMANTINE HCL [Suspect]
     Dosage: 210 MG
     Dates: start: 20090803

REACTIONS (8)
  - ASTHENIA [None]
  - CONFUSIONAL STATE [None]
  - LETHARGY [None]
  - LUNG ADENOCARCINOMA METASTATIC [None]
  - MALIGNANT NEOPLASM PROGRESSION [None]
  - OEDEMA [None]
  - PNEUMONIA BACTERIAL [None]
  - URINE OUTPUT DECREASED [None]
